FAERS Safety Report 9468424 (Version 1)
Quarter: 2013Q3

REPORT INFORMATION
  Report Type: Spontaneous
  Country: US (occurrence: US)
  Receive Date: 20130821
  Receipt Date: 20130821
  Transmission Date: 20140515
  Serious: No
  Sender: FDA-Public Use
  Company Number: US-PFIZER INC-2013239221

PATIENT
  Age: 78 Year
  Sex: Male

DRUGS (8)
  1. SUTENT [Suspect]
     Indication: RENAL CANCER
     Dosage: 25 MG, UNK
  2. SUTENT [Suspect]
     Dosage: 12.5 MG, UNK
  3. LEVOTHYROXINE SODIUM [Concomitant]
     Dosage: UNK
  4. METOPROLOL TARTRATE [Concomitant]
     Dosage: UNK
  5. FUROSEMIDE [Concomitant]
     Dosage: UNK
  6. SERTRALINE HYDROCHLORIDE [Concomitant]
     Dosage: UNK
  7. TERAZOSIN HYDROCHLORIDE [Concomitant]
     Dosage: UNK
  8. ONDANSETRON HYDROCHLORIDE [Concomitant]
     Dosage: UNK

REACTIONS (5)
  - Stomatitis [Unknown]
  - Ageusia [Unknown]
  - Nausea [Unknown]
  - Blood pressure increased [Unknown]
  - Alopecia [Unknown]
